FAERS Safety Report 24689452 (Version 1)
Quarter: 2024Q4

REPORT INFORMATION
  Report Type: Report from Study
  Country: US (occurrence: US)
  Receive Date: 20241203
  Receipt Date: 20241203
  Transmission Date: 20250115
  Serious: Yes (Hospitalization)
  Sender: ROCHE
  Company Number: US-ROCHE-10000147478

PATIENT
  Age: 75 Year
  Sex: Female

DRUGS (9)
  1. ACTEMRA [Suspect]
     Active Substance: TOCILIZUMAB
     Indication: Rheumatoid arthritis
     Dosage: INJECT THE CONTENTS OF ONE DEVICE UNDER THE SKIN ONCE WEEKLY
     Route: 058
  2. ACTEMRA [Suspect]
     Active Substance: TOCILIZUMAB
  3. AMITRIPTYLINE [Concomitant]
     Active Substance: AMITRIPTYLINE
  4. CANAGLIFLOZIN [Concomitant]
     Active Substance: CANAGLIFLOZIN
  5. CODEINE [Concomitant]
     Active Substance: CODEINE
  6. MELOXICAM [Concomitant]
     Active Substance: MELOXICAM
  7. ROSIGLITAZONE MALEATE [Concomitant]
     Active Substance: ROSIGLITAZONE MALEATE
  8. SEMAGLUTIDE [Concomitant]
     Active Substance: SEMAGLUTIDE
  9. TRAMADOL [Concomitant]
     Active Substance: TRAMADOL

REACTIONS (1)
  - Lower limb fracture [Unknown]
